FAERS Safety Report 4806104-3 (Version None)
Quarter: 2005Q4

REPORT INFORMATION
  Report Type: 
  Country: None (occurrence: None)
  Receive Date: 20051021
  Receipt Date: 20050924
  Transmission Date: 20060501
  Serious: Yes (Other)
  Sender: FDA-Public Use
  Company Number: US-ROCHE-419135

PATIENT
  Age: 48 Year
  Sex: Female

DRUGS (1)
  1. BONIVA [Suspect]
     Indication: DRUG USE FOR UNKNOWN INDICATION
     Dosage: FREQUENCY REPORTED AS QM.
     Route: 048
     Dates: start: 20050915

REACTIONS (4)
  - ARTHRALGIA [None]
  - CHILLS [None]
  - LIVER FUNCTION TEST ABNORMAL [None]
  - PYREXIA [None]
